FAERS Safety Report 20809657 (Version 1)
Quarter: 2022Q2

REPORT INFORMATION
  Report Type: Spontaneous
  Country: US (occurrence: US)
  Receive Date: 20220510
  Receipt Date: 20220510
  Transmission Date: 20220721
  Serious: No
  Sender: FDA-Public Use
  Company Number: US-OYSTER POINT PHARMA, INC.-2022OYS00391

PATIENT
  Age: 5 Decade
  Sex: Female

DRUGS (1)
  1. TYRVAYA [Suspect]
     Active Substance: VARENICLINE TARTRATE
     Indication: Dry eye
     Dosage: 1 SPRAY, EACH NOSTRIL, 2X/DAY, 12 HOURS APART
     Route: 045
     Dates: end: 202204

REACTIONS (4)
  - Eye pruritus [Unknown]
  - Erythema of eyelid [Unknown]
  - Conjunctival haemorrhage [Unknown]
  - Sneezing [Unknown]

NARRATIVE: CASE EVENT DATE: 20220401
